FAERS Safety Report 8190972-4 (Version None)
Quarter: 2012Q1

REPORT INFORMATION
  Report Type: 
  Country: None (occurrence: None)
  Receive Date: 20120307
  Receipt Date: 20120302
  Transmission Date: 20120608
  Serious: Yes (Hospitalization)
  Sender: FDA-Public Use
  Company Number: BE-AMGEN-BELCT2012004976

PATIENT
  Age: 39 Year
  Sex: Female

DRUGS (12)
  1. CYCLOPHOSPHAMIDE [Concomitant]
     Indication: BREAST CANCER
     Dosage: 600 MG/M2, Q3WK
     Route: 042
     Dates: start: 20111207
  2. NOVABAN [Concomitant]
  3. FLUOROURACIL [Concomitant]
     Indication: BREAST CANCER
     Dosage: 600 MG/M2, Q3WK
     Route: 042
     Dates: start: 20111207
  4. PANTOPRAZOLE [Concomitant]
     Dosage: 90 MG, UNK
  5. NEULASTA [Suspect]
     Dosage: 6 MG, Q3WK
     Route: 058
     Dates: start: 20111228
  6. SOLU-MEDROL [Concomitant]
     Dosage: 80 MG, UNK
  7. EPIRUBICIN [Concomitant]
     Indication: BREAST CANCER
     Dosage: 100 MG/M2, Q3WK
     Route: 042
     Dates: start: 20111207
  8. EMEND [Concomitant]
  9. MEDROL [Concomitant]
     Dosage: 32 MG, UNK
  10. ZYRTEC [Concomitant]
  11. XGEVA [Suspect]
     Indication: BREAST CANCER
     Dosage: UNK, Q3WK
     Route: 058
     Dates: start: 20111207
  12. LITICAN [Concomitant]
     Dosage: 20 MG, UNK

REACTIONS (2)
  - PAIN OF SKIN [None]
  - MYALGIA [None]
